FAERS Safety Report 12215479 (Version 2)
Quarter: 2016Q2

REPORT INFORMATION
  Report Type: Report from Study
  Country: US (occurrence: US)
  Receive Date: 20160328
  Receipt Date: 20160429
  Transmission Date: 20160815
  Serious: Yes (Death, Hospitalization)
  Sender: FDA-Public Use
  Company Number: US-HLSUS-2016-US-000161

PATIENT
  Age: 47 Year
  Sex: Female

DRUGS (4)
  1. CLOZAPINE. [Suspect]
     Active Substance: CLOZAPINE
     Indication: SCHIZOPHRENIA
     Dosage: 200 MG AT BEDTIME
     Route: 048
     Dates: end: 20160216
  2. ABILIFY [Concomitant]
     Active Substance: ARIPIPRAZOLE
     Indication: SCHIZOPHRENIA
     Dosage: 10 MG
     Route: 048
     Dates: end: 20160216
  3. LORAZEPAM. [Concomitant]
     Active Substance: LORAZEPAM
     Indication: ANXIETY
     Dosage: 1 MG
     Route: 048
     Dates: end: 20160216
  4. LITHIUM CARBONATE. [Concomitant]
     Active Substance: LITHIUM CARBONATE
     Indication: SCHIZOPHRENIA
     Dosage: 600 MG
     Route: 048
     Dates: end: 20160216

REACTIONS (2)
  - Myocardial infarction [Fatal]
  - Back pain [Unknown]

NARRATIVE: CASE EVENT DATE: 201602
